FAERS Safety Report 25009581 (Version 1)
Quarter: 2025Q1

REPORT INFORMATION
  Report Type: Spontaneous
  Country: CN (occurrence: CN)
  Receive Date: 20250225
  Receipt Date: 20250225
  Transmission Date: 20250408
  Serious: Yes (Other)
  Sender: NOVARTIS
  Company Number: CN-002147023-NVSC2025CN030273

PATIENT
  Age: 59 Year
  Sex: Male
  Weight: 55 kg

DRUGS (2)
  1. CARBAMAZEPINE [Suspect]
     Active Substance: CARBAMAZEPINE
     Indication: Parkinson^s disease
     Dosage: 0.200 G, TID
     Route: 048
     Dates: start: 20250110, end: 20250112
  2. CARBAMAZEPINE [Suspect]
     Active Substance: CARBAMAZEPINE
     Indication: Epilepsy

REACTIONS (4)
  - Altered state of consciousness [Recovering/Resolving]
  - Brain oedema [Unknown]
  - Speech disorder [Unknown]
  - Indifference [Unknown]

NARRATIVE: CASE EVENT DATE: 20250111
